FAERS Safety Report 4890953-X (Version None)
Quarter: 2006Q1

REPORT INFORMATION
  Report Type: 
  Country: None (occurrence: None)
  Receive Date: 20060125
  Receipt Date: 20050804
  Transmission Date: 20060701
  Serious: Yes (Hospitalization, Other)
  Sender: FDA-Public Use
  Company Number: US-AVENTIS-200516109US

PATIENT
  Sex: Female
  Weight: 59.09 kg

DRUGS (4)
  1. TAXOTERE [Suspect]
     Indication: BREAST CANCER
     Dosage: DOSE: NOT PROVIDED
  2. AMBIEN [Suspect]
  3. ADRIAMYCIN PFS [Concomitant]
     Indication: BREAST CANCER
     Dosage: DOSE: NOT PROVIDED
  4. CYCLOPHOSPHAMIDE [Concomitant]
     Indication: BREAST CANCER
     Dosage: DOSE: NOT PROVIDED

REACTIONS (10)
  - ANOREXIA [None]
  - CLOSTRIDIUM COLITIS [None]
  - DEPRESSION [None]
  - DRUG DEPENDENCE [None]
  - DYSGEUSIA [None]
  - HEARING IMPAIRED [None]
  - PARAESTHESIA [None]
  - PAROSMIA [None]
  - SEPTIC SHOCK [None]
  - WEIGHT DECREASED [None]
